FAERS Safety Report 21689176 (Version 1)
Quarter: 2022Q4

REPORT INFORMATION
  Report Type: Spontaneous
  Country: US (occurrence: US)
  Receive Date: 20221206
  Receipt Date: 20221206
  Transmission Date: 20230112
  Serious: No
  Sender: FDA-Public Use
  Company Number: US-TAKEDA-2022TUS089157

PATIENT
  Age: 62 Year
  Sex: Female

DRUGS (3)
  1. MOBOCERTINIB [Suspect]
     Active Substance: MOBOCERTINIB
     Indication: Lung adenocarcinoma stage IV
     Dosage: 80 MILLIGRAM
     Route: 065
  2. MOBOCERTINIB [Suspect]
     Active Substance: MOBOCERTINIB
     Indication: Metastases to liver
     Dosage: 120 MILLIGRAM
     Route: 065
  3. MOBOCERTINIB [Suspect]
     Active Substance: MOBOCERTINIB
     Dosage: 80 MILLIGRAM
     Route: 065

REACTIONS (5)
  - Abdominal pain [Unknown]
  - Abdominal distension [Unknown]
  - Diarrhoea [Unknown]
  - Rash [Unknown]
  - Therapy partial responder [Unknown]
